FAERS Safety Report 10682814 (Version 1)
Quarter: 2014Q4

REPORT INFORMATION
  Report Type: Spontaneous
  Country: US (occurrence: US)
  Receive Date: 20141230
  Receipt Date: 20141230
  Transmission Date: 20150529
  Serious: No
  Sender: FDA-Public Use
  Company Number: US-BAUSCH-SYM-2014-22271

PATIENT
  Age: 57 Year
  Sex: Male

DRUGS (1)
  1. XENAZINE [Suspect]
     Active Substance: TETRABENAZINE
     Indication: HUNTINGTON^S DISEASE
     Dosage: 50 MILLIGRAM IN THE MORNING, 50 MILLIGRAM IN THE MIDDAY AND 25 MILLIGRAM IN THE EVENING
     Route: 048
     Dates: start: 20120403

REACTIONS (4)
  - Disorientation [Unknown]
  - Overdose [Unknown]
  - Cold sweat [Unknown]
  - Lethargy [Unknown]

NARRATIVE: CASE EVENT DATE: 201406
